FAERS Safety Report 4328636-7 (Version None)
Quarter: 2004Q1

REPORT INFORMATION
  Report Type: 
  Country: None (occurrence: None)
  Receive Date: 20040325
  Receipt Date: 20040312
  Transmission Date: 20041129
  Serious: No
  Sender: FDA-Public Use
  Company Number: CART-10328

PATIENT
  Age: 38 Year
  Sex: Female

DRUGS (1)
  1. CARTICEL [Suspect]
     Indication: ARTHROPATHY
     Dosage: 1 NA ONCE IS
     Dates: start: 19991214, end: 19991214

REACTIONS (10)
  - ARTHROFIBROSIS [None]
  - ARTHROPATHY [None]
  - CHONDROMALACIA [None]
  - CREPITATIONS [None]
  - DRUG EFFECT DECREASED [None]
  - FAILURE OF IMPLANT [None]
  - JOINT DISLOCATION [None]
  - MUSCULOSKELETAL STIFFNESS [None]
  - POSTOPERATIVE ADHESION [None]
  - SURGICAL PROCEDURE REPEATED [None]
